FAERS Safety Report 19021897 (Version 1)
Quarter: 2021Q1

REPORT INFORMATION
  Report Type: Spontaneous
  Country: GB (occurrence: GB)
  Receive Date: 20210317
  Receipt Date: 20210317
  Transmission Date: 20210420
  Serious: Yes (Life-Threatening, Hospitalization, Other)
  Sender: FDA-Public Use
  Company Number: GB-DEXPHARM-20210304

PATIENT
  Age: 59 Year

DRUGS (10)
  1. COCODAMOL [Concomitant]
     Active Substance: ACETAMINOPHEN\CODEINE PHOSPHATE
  2. RAMIPRIL. [Concomitant]
     Active Substance: RAMIPRIL
  3. VENLAFAXINE [Suspect]
     Active Substance: VENLAFAXINE HYDROCHLORIDE
     Dosage: 150MG OM, 75MG ON
  4. SIMVASTATIN. [Concomitant]
     Active Substance: SIMVASTATIN
  5. CLONAZEPAM. [Concomitant]
     Active Substance: CLONAZEPAM
  6. PREGABALIN. [Interacting]
     Active Substance: PREGABALIN
  7. BISOPROLOL [Concomitant]
     Active Substance: BISOPROLOL
  8. METFORMIN [Concomitant]
     Active Substance: METFORMIN HYDROCHLORIDE
  9. OXYBUTYNIN. [Concomitant]
     Active Substance: OXYBUTYNIN CHLORIDE
  10. TRULICITY [Concomitant]
     Active Substance: DULAGLUTIDE
     Dosage: 1.5MG/0.5ML

REACTIONS (2)
  - Electrocardiogram QT prolonged [Not Recovered/Not Resolved]
  - Drug interaction [Not Recovered/Not Resolved]
